FAERS Safety Report 5689705-2 (Version None)
Quarter: 2008Q1

REPORT INFORMATION
  Report Type: 
  Country: None (occurrence: None)
  Receive Date: 20080328
  Receipt Date: 20080318
  Transmission Date: 20080703
  Serious: Yes (Death, Hospitalization, Other)
  Sender: FDA-Public Use
  Company Number: 2008US000640

PATIENT
  Age: 59 Year
  Sex: Female

DRUGS (12)
  1. PROGRAF [Suspect]
     Indication: LIVER TRANSPLANT
     Dosage: 3 MG, BID, ORAL, 4 MG, BID, ORAL, 5 MG, BID, ORAL, 7 MG, BID, ORAL, 6 MG, ORAL, 7 MG, ORAL
     Route: 048
     Dates: start: 20060103, end: 20060101
  2. PROGRAF [Suspect]
     Indication: LIVER TRANSPLANT
     Dosage: 3 MG, BID, ORAL, 4 MG, BID, ORAL, 5 MG, BID, ORAL, 7 MG, BID, ORAL, 6 MG, ORAL, 7 MG, ORAL
     Route: 048
     Dates: start: 20060101, end: 20060401
  3. PROGRAF [Suspect]
     Indication: LIVER TRANSPLANT
     Dosage: 3 MG, BID, ORAL, 4 MG, BID, ORAL, 5 MG, BID, ORAL, 7 MG, BID, ORAL, 6 MG, ORAL, 7 MG, ORAL
     Route: 048
     Dates: start: 20060401, end: 20060401
  4. PROGRAF [Suspect]
     Indication: LIVER TRANSPLANT
     Dosage: 3 MG, BID, ORAL, 4 MG, BID, ORAL, 5 MG, BID, ORAL, 7 MG, BID, ORAL, 6 MG, ORAL, 7 MG, ORAL
     Route: 048
     Dates: start: 20060401, end: 20060401
  5. PROGRAF [Suspect]
     Indication: LIVER TRANSPLANT
     Dosage: 3 MG, BID, ORAL, 4 MG, BID, ORAL, 5 MG, BID, ORAL, 7 MG, BID, ORAL, 6 MG, ORAL, 7 MG, ORAL
     Route: 048
     Dates: start: 20060401, end: 20060401
  6. PROGRAF [Suspect]
     Indication: LIVER TRANSPLANT
     Dosage: 3 MG, BID, ORAL, 4 MG, BID, ORAL, 5 MG, BID, ORAL, 7 MG, BID, ORAL, 6 MG, ORAL, 7 MG, ORAL
     Route: 048
     Dates: start: 20060401, end: 20070301
  7. PROGRAF [Suspect]
     Indication: LIVER TRANSPLANT
     Dosage: 3 MG, BID, ORAL, 4 MG, BID, ORAL, 5 MG, BID, ORAL, 7 MG, BID, ORAL, 6 MG, ORAL, 7 MG, ORAL
     Route: 048
     Dates: start: 20070301, end: 20071001
  8. CELLCEPT [Concomitant]
  9. MYFORTIC [Concomitant]
  10. PREDNISOLONE ACETATE [Concomitant]
  11. ZENAPAX [Concomitant]
  12. THYMOGLOBULIN [Concomitant]

REACTIONS (32)
  - ACUTE RESPIRATORY FAILURE [None]
  - AMMONIA INCREASED [None]
  - BACK PAIN [None]
  - BRADYCARDIA [None]
  - COMPLICATIONS OF TRANSPLANTED LIVER [None]
  - CONTINUOUS HAEMODIAFILTRATION [None]
  - CYTOMEGALOVIRUS ANTIBODY POSITIVE [None]
  - DIARRHOEA [None]
  - ENTEROCOCCAL BACTERAEMIA [None]
  - FAILURE TO THRIVE [None]
  - GAIT DISTURBANCE [None]
  - HAEMODYNAMIC INSTABILITY [None]
  - HEPATIC STEATOSIS [None]
  - HIP FRACTURE [None]
  - HYPERGLYCAEMIA [None]
  - HYPOAESTHESIA [None]
  - HYPOTHYROIDISM [None]
  - LIVER TRANSPLANT REJECTION [None]
  - METABOLIC ACIDOSIS [None]
  - MYOPATHY STEROID [None]
  - OEDEMA PERIPHERAL [None]
  - OSTEOPENIA [None]
  - OSTEOPOROSIS [None]
  - PALPITATIONS [None]
  - PARAESTHESIA [None]
  - POST PROCEDURAL COMPLICATION [None]
  - RENAL FAILURE ACUTE [None]
  - RENAL FAILURE CHRONIC [None]
  - SEPSIS [None]
  - SPINAL COMPRESSION FRACTURE [None]
  - TACHYPNOEA [None]
  - WEIGHT GAIN POOR [None]
